FAERS Safety Report 8030538-X (Version None)
Quarter: 2011Q4

REPORT INFORMATION
  Report Type: 
  Country: None (occurrence: None)
  Receive Date: 20111130
  Receipt Date: 20110707
  Transmission Date: 20120403
  Serious: Yes (Other)
  Sender: FDA-Public Use
  Company Number: US200910004069

PATIENT
  Sex: Female

DRUGS (3)
  1. EXENATIDE UNK STRENGTH PEN, DISPOSABLE DEVICE (EXENATIDE PEN (UNKNOWN [Concomitant]
  2. BYETTA [Suspect]
     Dosage: 5 UG, BID
     Dates: end: 20070701
  3. BYETTA [Suspect]
     Dosage: 5 UG, BID
     Dates: start: 20051001

REACTIONS (2)
  - PANCREATITIS [None]
  - RENAL FAILURE CHRONIC [None]
